FAERS Safety Report 23853266 (Version 1)
Quarter: 2024Q2

REPORT INFORMATION
  Report Type: Spontaneous
  Country: DE (occurrence: DE)
  Receive Date: 20240514
  Receipt Date: 20240514
  Transmission Date: 20240715
  Serious: Yes (Death, Other)
  Sender: FDA-Public Use
  Company Number: DE-SUN PHARMACEUTICAL INDUSTRIES LTD-2024R1-445481

PATIENT
  Age: 30 Year
  Sex: Female

DRUGS (7)
  1. DEXAMETHASONE [Suspect]
     Active Substance: DEXAMETHASONE
     Indication: Large granular lymphocytosis
     Dosage: UNK
     Route: 065
  2. METHOTREXATE [Suspect]
     Active Substance: METHOTREXATE
     Indication: Familial haemophagocytic lymphohistiocytosis
     Dosage: UNK (LOW-DOSE)
     Route: 065
  3. ANAKINRA [Suspect]
     Active Substance: ANAKINRA
     Indication: Large granular lymphocytosis
     Dosage: UNK
     Route: 065
  4. ANAKINRA [Suspect]
     Active Substance: ANAKINRA
     Indication: Familial haemophagocytic lymphohistiocytosis
  5. ETOPOSIDE [Suspect]
     Active Substance: ETOPOSIDE
     Indication: Large granular lymphocytosis
     Dosage: UNK (WEEKLY)
     Route: 065
  6. RUXOLITINIB [Suspect]
     Active Substance: RUXOLITINIB
     Indication: Large granular lymphocytosis
     Dosage: UNK
     Route: 065
  7. RUXOLITINIB [Suspect]
     Active Substance: RUXOLITINIB
     Indication: Familial haemophagocytic lymphohistiocytosis

REACTIONS (2)
  - Infection [Fatal]
  - Drug ineffective [Unknown]
